FAERS Safety Report 12652661 (Version 1)
Quarter: 2016Q3

REPORT INFORMATION
  Report Type: Spontaneous
  Country: PL (occurrence: PL)
  Receive Date: 20160815
  Receipt Date: 20160815
  Transmission Date: 20161109
  Serious: Yes (Life-Threatening, Hospitalization)
  Sender: FDA-Public Use
  Company Number: PL-AKORN PHARMACEUTICALS-2016AKN00510

PATIENT
  Age: 17 Year
  Sex: Male

DRUGS (1)
  1. ISOTRETINOIN [Suspect]
     Active Substance: ISOTRETINOIN
     Indication: ACNE
     Dosage: 40-80 MG/DAY (MEAN 60 MG/DAY)
     Route: 048

REACTIONS (2)
  - Suicidal ideation [Unknown]
  - Major depression [Unknown]
